FAERS Safety Report 9960935 (Version 1)
Quarter: 2014Q1

REPORT INFORMATION
  Report Type: Spontaneous
  Country: US (occurrence: None)
  Receive Date: 20140127
  Receipt Date: 20140127
  Transmission Date: 20141002
  Serious: Yes (Death)
  Sender: FDA-Public Use
  Company Number: 1277537

PATIENT
  Age: 70 Year
  Sex: Male
  Weight: 105.6 kg

DRUGS (1)
  1. ACTIVASE [Suspect]
     Indication: CEREBROVASCULAR ACCIDENT
     Dosage: ONCE (90 MG), INTRAVENOUS (NOT OTHERWISE SPECIFIED)
     Route: 042
     Dates: start: 20130827, end: 20130827

REACTIONS (1)
  - Haemorrhagic infarction [None]
